FAERS Safety Report 7004218-3 (Version None)
Quarter: 2010Q3

REPORT INFORMATION
  Report Type: 
  Country: None (occurrence: None)
  Receive Date: 20100920
  Receipt Date: 20100208
  Transmission Date: 20110219
  Serious: No
  Sender: FDA-Public Use
  Company Number: US-WYE-H13543710

PATIENT
  Sex: Female

DRUGS (2)
  1. PRISTIQ [Suspect]
     Indication: ANXIETY
     Route: 048
     Dates: start: 20100118, end: 20100201
  2. PRISTIQ [Suspect]
     Route: 048
     Dates: start: 20100201

REACTIONS (2)
  - ANXIETY [None]
  - CONDITION AGGRAVATED [None]
